FAERS Safety Report 19372319 (Version 1)
Quarter: 2021Q2

REPORT INFORMATION
  Report Type: Spontaneous
  Country: US (occurrence: US)
  Receive Date: 20210604
  Receipt Date: 20210604
  Transmission Date: 20210717
  Serious: No
  Sender: FDA-Public Use
  Company Number: US-APOTEX-2021AP010047

PATIENT
  Age: 63 Year
  Sex: Male

DRUGS (7)
  1. LOTEPREDNOL [Concomitant]
     Active Substance: LOTEPREDNOL
     Indication: EYE PAIN
     Dosage: UNK UNK, BID
     Route: 065
  2. DICLOFENAC [Concomitant]
     Active Substance: DICLOFENAC
     Indication: EYE PAIN
     Dosage: UNK UNK, TID
     Route: 061
  3. ZOLPIDEM [Suspect]
     Active Substance: ZOLPIDEM TARTRATE
     Indication: PRODUCT USED FOR UNKNOWN INDICATION
     Dosage: UNK
     Route: 048
  4. PREGABALIN. [Concomitant]
     Active Substance: PREGABALIN
     Indication: EYE PAIN
     Dosage: UNK, BID (ESCALATING TO A DOSE OF 50 MG ADMINISTERED TWICE DAILY)
     Route: 048
  5. ARTIFICIAL TEARS [Concomitant]
     Active Substance: GLYCERIN\HYPROMELLOSES\POLYETHYLENE GLYCOL 400
     Indication: EYE PAIN
     Dosage: UNK (4 TO 5X/DAY ONCE DAILY)
     Route: 061
  6. CLONAZEPAM. [Suspect]
     Active Substance: CLONAZEPAM
     Indication: PRODUCT USED FOR UNKNOWN INDICATION
     Dosage: UNK
     Route: 048
  7. GABAPENTIN. [Suspect]
     Active Substance: GABAPENTIN
     Indication: EYE PAIN
     Dosage: 600 MILLIGRAM, TID
     Route: 048

REACTIONS (2)
  - Treatment noncompliance [Unknown]
  - Drug ineffective [Unknown]
